FAERS Safety Report 25239556 (Version 3)
Quarter: 2025Q3

REPORT INFORMATION
  Report Type: Spontaneous
  Country: EU (occurrence: EU)
  Receive Date: 20250425
  Receipt Date: 20250804
  Transmission Date: 20251021
  Serious: Yes (Other)
  Sender: ABBVIE
  Company Number: EU-AUROBINDO-AUR-APL-2025-017805

PATIENT
  Age: 79 Year
  Sex: Male

DRUGS (12)
  1. OFLOXACIN [Suspect]
     Active Substance: OFLOXACIN
     Indication: Staphylococcal infection
     Route: 065
  2. OFLOXACIN [Suspect]
     Active Substance: OFLOXACIN
     Indication: Purulent discharge
  3. CALCIUM [Concomitant]
     Active Substance: CALCIUM
     Indication: Product used for unknown indication
     Route: 065
  4. HEPARIN [Concomitant]
     Active Substance: HEPARIN SODIUM
     Indication: Conjunctival haemorrhage
     Route: 065
  5. ACETAZOLAMIDE [Concomitant]
     Active Substance: ACETAZOLAMIDE
     Indication: Conjunctival haemorrhage
     Route: 065
  6. COUMADIN [Concomitant]
     Active Substance: WARFARIN SODIUM
     Indication: Product used for unknown indication
     Route: 065
  7. WARFARIN SODIUM [Suspect]
     Active Substance: WARFARIN SODIUM
     Indication: Product used for unknown indication
     Route: 065
  8. ALFUZOSIN [Concomitant]
     Active Substance: ALFUZOSIN
     Indication: Product used for unknown indication
  9. PRISTINAMYCIN [Suspect]
     Active Substance: PRISTINAMYCIN
     Indication: Staphylococcal infection
     Route: 065
  10. VITAMIN K [Concomitant]
     Active Substance: PHYTONADIONE
     Indication: Conjunctival haemorrhage
  11. PANTOPRAZOLE [Concomitant]
     Active Substance: PANTOPRAZOLE
     Indication: Product used for unknown indication
     Route: 065
  12. VITAMIN D NOS [Concomitant]
     Active Substance: CHOLECALCIFEROL\ERGOCALCIFEROL
     Indication: Product used for unknown indication

REACTIONS (12)
  - Traumatic haemorrhage [Unknown]
  - Injury [Unknown]
  - Irritability [Recovering/Resolving]
  - Vomiting [Recovering/Resolving]
  - Fall [Unknown]
  - Eye injury [Unknown]
  - Hyphaema [Unknown]
  - Insomnia [Recovering/Resolving]
  - Patient elopement [Recovering/Resolving]
  - Overdose [Unknown]
  - Drug interaction [Unknown]
  - Conjunctival haemorrhage [Unknown]
